FAERS Safety Report 8989788 (Version 2)
Quarter: 2013Q1

REPORT INFORMATION
  Report Type: Spontaneous
  Country: TN (occurrence: TN)
  Receive Date: 20121228
  Receipt Date: 20130103
  Transmission Date: 20140127
  Serious: Yes (Congenital Anomaly, Other)
  Sender: FDA-Public Use
  Company Number: TN-AMGEN-TUNSP2012083332

PATIENT
  Sex: Male

DRUGS (1)
  1. ENBREL [Suspect]
     Indication: ANKYLOSING SPONDYLITIS
     Dosage: UNK
     Route: 064

REACTIONS (5)
  - Congenital intestinal malformation [Unknown]
  - Foetal growth restriction [Unknown]
  - Neonatal respiratory distress syndrome [Unknown]
  - Premature baby [Unknown]
  - Exposure via father [Unknown]
